FAERS Safety Report 19208067 (Version 1)
Quarter: 2021Q2

REPORT INFORMATION
  Report Type: Spontaneous
  Country: US (occurrence: US)
  Receive Date: 20210503
  Receipt Date: 20210503
  Transmission Date: 20210717
  Serious: No
  Sender: FDA-Public Use
  Company Number: US-ABBVIE-20K-163-3444868-00

PATIENT

DRUGS (1)
  1. CREON [Suspect]
     Active Substance: PANCRELIPASE AMYLASE\PANCRELIPASE LIPASE\PANCRELIPASE PROTEASE
     Indication: WHIPPLE^S DISEASE
     Dosage: 1?3 CAP WITH MEALS?1?2 CAP WITH SNACKS
     Route: 048

REACTIONS (1)
  - Constipation [Not Recovered/Not Resolved]
